FAERS Safety Report 6004974-7 (Version None)
Quarter: 2008Q4

REPORT INFORMATION
  Report Type: 
  Country: None (occurrence: None)
  Receive Date: 20081216
  Receipt Date: 20081208
  Transmission Date: 20090506
  Serious: Yes (Other)
  Sender: FDA-Public Use
  Company Number: PHEH2008US02539

PATIENT
  Sex: Male

DRUGS (3)
  1. AREDIA [Suspect]
  2. ZOMETA [Suspect]
  3. AMOXICILLIN [Concomitant]

REACTIONS (16)
  - ANXIETY [None]
  - DEBRIDEMENT [None]
  - DENTAL CARIES [None]
  - DENTAL OPERATION [None]
  - DISCOMFORT [None]
  - GENERAL PHYSICAL HEALTH DETERIORATION [None]
  - GINGIVAL RECESSION [None]
  - INFECTION [None]
  - MASTICATION DISORDER [None]
  - OSTEONECROSIS [None]
  - PAIN [None]
  - PERIODONTAL OPERATION [None]
  - SCAR [None]
  - TOOTH DISORDER [None]
  - TOOTH EXTRACTION [None]
  - TOOTH LOSS [None]
